FAERS Safety Report 20721323 (Version 2)
Quarter: 2022Q2

REPORT INFORMATION
  Report Type: Spontaneous
  Country: US (occurrence: US)
  Receive Date: 20220418
  Receipt Date: 20220624
  Transmission Date: 20220721
  Serious: No
  Sender: FDA-Public Use
  Company Number: US-JNJFOC-20220347023

PATIENT
  Age: 73 Year
  Sex: Male
  Weight: 87.7 kg

DRUGS (1)
  1. RYBREVANT [Suspect]
     Active Substance: AMIVANTAMAB-VMJW
     Indication: Non-small cell lung cancer metastatic
     Dosage: C1D1?TOTAL DOSES: 2
     Route: 042
     Dates: start: 20220414

REACTIONS (1)
  - Infusion related reaction [Unknown]
